FAERS Safety Report 4490482-1 (Version None)
Quarter: 2004Q4

REPORT INFORMATION
  Report Type: 
  Country: None (occurrence: None)
  Receive Date: 20041102
  Receipt Date: 20041026
  Transmission Date: 20050328
  Serious: Yes (Hospitalization, Other)
  Sender: FDA-Public Use
  Company Number: AU-BRISTOL-MYERS SQUIBB COMPANY-12744702

PATIENT
  Age: 66 Year
  Sex: Male

DRUGS (12)
  1. IFOSFAMIDE [Suspect]
     Indication: LYMPHOMA
     Dates: start: 20040927, end: 20040927
  2. VINORELBINE TARTRATE [Suspect]
     Indication: LYMPHOMA
     Dates: start: 20040927, end: 20040927
  3. GEMZAR [Suspect]
     Indication: LYMPHOMA
     Dates: start: 20040927, end: 20040927
  4. DEXAMETHASONE [Concomitant]
     Dates: start: 20040927
  5. MESNA [Concomitant]
     Dates: start: 20040927
  6. TROPISETRON [Concomitant]
     Indication: ANTIEMETIC SUPPORTIVE CARE
     Dates: start: 20040927
  7. RANITIDINE [Concomitant]
     Dates: start: 20040927
  8. AUGMENTIN DUO FORTE [Concomitant]
     Indication: PNEUMONIA
     Dates: start: 20040924
  9. ATENOLOL [Concomitant]
     Indication: BLOOD PRESSURE
     Dates: start: 20040920
  10. SEPTRA [Concomitant]
     Dates: start: 20040917
  11. ALLOPURINOL [Concomitant]
     Indication: GOUT
     Route: 048
  12. CITALOPRAM [Concomitant]
     Indication: DEPRESSION

REACTIONS (4)
  - ATRIAL FIBRILLATION [None]
  - COMA [None]
  - HYPOKINESIA [None]
  - SOMNOLENCE [None]
